FAERS Safety Report 22640230 (Version 1)
Quarter: 2023Q2

REPORT INFORMATION
  Report Type: Spontaneous
  Country: FR (occurrence: FR)
  Receive Date: 20230626
  Receipt Date: 20230626
  Transmission Date: 20230722
  Serious: Yes (Hospitalization)
  Sender: FDA-Public Use
  Company Number: None

PATIENT
  Age: 73 Year
  Sex: Female

DRUGS (2)
  1. ALLOPURINOL [Suspect]
     Active Substance: ALLOPURINOL
     Indication: Product used for unknown indication
     Dosage: 100 MG, QD
     Route: 048
     Dates: end: 20230509
  2. BENSERAZIDE HYDROCHLORIDE\LEVODOPA [Suspect]
     Active Substance: BENSERAZIDE HYDROCHLORIDE\LEVODOPA
     Indication: Parkinsonism
     Dosage: 1 DOSAGE FORM, Q8H
     Route: 048
     Dates: start: 20230427, end: 20230509

REACTIONS (5)
  - Acute kidney injury [Recovered/Resolved]
  - Eosinophilia [Not Recovered/Not Resolved]
  - Face oedema [Recovered/Resolved]
  - Skin exfoliation [Recovered/Resolved]
  - Hypotension [Recovered/Resolved]

NARRATIVE: CASE EVENT DATE: 20230428
